FAERS Safety Report 21646889 (Version 2)
Quarter: 2022Q4

REPORT INFORMATION
  Report Type: Spontaneous
  Country: RO (occurrence: RO)
  Receive Date: 20221127
  Receipt Date: 20221215
  Transmission Date: 20230112
  Serious: Yes (Other)
  Sender: FDA-Public Use
  Company Number: RO-TEVA-2022-RO-2828987

PATIENT
  Age: 20 Year
  Sex: Female

DRUGS (4)
  1. ARSENIC TRIOXIDE [Suspect]
     Active Substance: ARSENIC TRIOXIDE
     Indication: Acute promyelocytic leukaemia
     Dosage: INDUCTION TREATMENT
     Route: 065
  2. ARSENIC TRIOXIDE [Suspect]
     Active Substance: ARSENIC TRIOXIDE
     Dosage: CONSOLIDATION TREATMENT, ADDITIONAL INFO: THERAPY COMPLETED
     Route: 065
  3. TRETINOIN [Suspect]
     Active Substance: TRETINOIN
     Indication: Acute promyelocytic leukaemia
     Dosage: INDUCTION TREATMENT
     Route: 065
  4. TRETINOIN [Suspect]
     Active Substance: TRETINOIN
     Dosage: CONSOLIDATION TREATMENT , ADDITIONAL INFO: THERAPY COMPLETED WITH REDUCED DOSES
     Route: 065

REACTIONS (1)
  - Idiopathic intracranial hypertension [Recovered/Resolved]
